FAERS Safety Report 18230645 (Version 1)
Quarter: 2020Q3

REPORT INFORMATION
  Report Type: Spontaneous
  Country: US (occurrence: US)
  Receive Date: 20200904
  Receipt Date: 20200904
  Transmission Date: 20201103
  Serious: No
  Sender: FDA-Public Use
  Company Number: US-SA-2020SA225710

PATIENT

DRUGS (6)
  1. DUPIXENT [Interacting]
     Active Substance: DUPILUMAB
     Indication: PRURIGO
  2. DUPIXENT [Interacting]
     Active Substance: DUPILUMAB
     Indication: DERMATITIS ATOPIC
  3. DUPIXENT [Interacting]
     Active Substance: DUPILUMAB
     Indication: IMPETIGO
  4. VARICELLA VACCINE, LIVE [Interacting]
     Active Substance: VARICELLA-ZOSTER VIRUS STRAIN OKA/MERCK LIVE ANTIGEN
     Dosage: UNK
  5. DUPIXENT [Suspect]
     Active Substance: DUPILUMAB
     Indication: DERMATITIS ALLERGIC
     Dosage: 300 MG, QOW
     Route: 058
  6. VARICELLA VACCINE, LIVE [Interacting]
     Active Substance: VARICELLA-ZOSTER VIRUS STRAIN OKA/MERCK LIVE ANTIGEN
     Dosage: UNK
     Dates: start: 2020

REACTIONS (5)
  - Pruritus [Not Recovered/Not Resolved]
  - Skin haemorrhage [Not Recovered/Not Resolved]
  - Drug interaction [Not Recovered/Not Resolved]
  - Product use in unapproved indication [Unknown]
  - Contraindicated product administered [Unknown]

NARRATIVE: CASE EVENT DATE: 202008
